FAERS Safety Report 14617190 (Version 2)
Quarter: 2018Q2

REPORT INFORMATION
  Report Type: Other
  Country: CA (occurrence: CA)
  Receive Date: 20180309
  Receipt Date: 20180422
  Transmission Date: 20180711
  Serious: Yes (Other)
  Sender: FDA-Public Use
  Company Number: CA-APOTEX-2018AP007325

PATIENT
  Sex: Female
  Weight: 56 kg

DRUGS (1)
  1. CABERGOLINE. [Suspect]
     Active Substance: CABERGOLINE
     Indication: HYPERPROLACTINAEMIA
     Dosage: 0.5 MG, UNK
     Route: 048

REACTIONS (4)
  - Headache [Unknown]
  - Vision blurred [Unknown]
  - Hyperhidrosis [Unknown]
  - Product substitution issue [Unknown]
